FAERS Safety Report 20551568 (Version 7)
Quarter: 2024Q1

REPORT INFORMATION
  Report Type: Report from Study
  Country: JP (occurrence: JP)
  Receive Date: 20220304
  Receipt Date: 20240311
  Transmission Date: 20240409
  Serious: Yes (Hospitalization, Other)
  Sender: FDA-Public Use
  Company Number: JP-ASTELLAS-2022JP003624

PATIENT
  Age: 75 Year
  Sex: Male
  Weight: 61.5 kg

DRUGS (6)
  1. ENFORTUMAB VEDOTIN [Suspect]
     Active Substance: ENFORTUMAB VEDOTIN
     Indication: Bladder cancer
     Route: 041
     Dates: start: 20220209, end: 20220216
  2. ENFORTUMAB VEDOTIN [Suspect]
     Active Substance: ENFORTUMAB VEDOTIN
     Dosage: RESUMED BY ONE STAGE REDUCTION, UNKNOWN FREQ.
     Route: 041
     Dates: start: 20220302, end: 20220316
  3. ENFORTUMAB VEDOTIN [Suspect]
     Active Substance: ENFORTUMAB VEDOTIN
     Route: 041
     Dates: start: 20220316, end: 20220330
  4. CLOBETASOL [Concomitant]
     Active Substance: CLOBETASOL
     Indication: Rash
     Dosage: APPROPRIATE AMOUNT, TWICE DAILY
     Route: 065
     Dates: start: 20220209, end: 20220331
  5. HEPARIN SODIUM [Concomitant]
     Active Substance: HEPARIN SODIUM
     Indication: Rash
     Dosage: APPROPRIATE AMOUNT, ONCE DAILY
     Route: 065
     Dates: start: 20220302, end: 20220331
  6. LENOGRASTIM [Concomitant]
     Active Substance: LENOGRASTIM
     Indication: Myelosuppression
     Route: 065
     Dates: start: 20220302, end: 20220305

REACTIONS (6)
  - Febrile neutropenia [Recovering/Resolving]
  - Neutropenia [Recovered/Resolved]
  - Myelosuppression [Recovered/Resolved]
  - Rash [Recovered/Resolved]
  - Malaise [Not Recovered/Not Resolved]
  - Inappropriate schedule of product administration [Recovered/Resolved]

NARRATIVE: CASE EVENT DATE: 20220209
